FAERS Safety Report 18032442 (Version 1)
Quarter: 2020Q3

REPORT INFORMATION
  Report Type: Spontaneous
  Country: NL (occurrence: NL)
  Receive Date: 20200716
  Receipt Date: 20200716
  Transmission Date: 20201103
  Serious: Yes (Other)
  Sender: FDA-Public Use
  Company Number: NL-PFIZER INC-2020267759

PATIENT
  Age: 8 Year
  Sex: Male
  Weight: 26.6 kg

DRUGS (3)
  1. PNEUMO 23 [Concomitant]
     Active Substance: PNEUMOCOCCAL VACCINE, POLYVALENT 23
     Indication: IMMUNISATION
     Dosage: SINGLE DOSE
     Dates: start: 20200304, end: 20200304
  2. AZITROMYCINE [Concomitant]
     Active Substance: AZITHROMYCIN
     Dosage: 250 MG, 1X/DAY (1 DD 250 MG)
  3. LINEZOLID. [Suspect]
     Active Substance: LINEZOLID
     Dosage: 300 MG, 2X/DAY (2 DD 300 MG)
     Route: 048
     Dates: start: 20200417

REACTIONS (4)
  - Product use issue [Unknown]
  - Off label use [Unknown]
  - Transaminases increased [Recovering/Resolving]
  - Neutropenia [Recovered/Resolved]

NARRATIVE: CASE EVENT DATE: 20200417
